FAERS Safety Report 13022383 (Version 1)
Quarter: 2016Q4

REPORT INFORMATION
  Report Type: Report from Study
  Country: GR (occurrence: GR)
  Receive Date: 20161213
  Receipt Date: 20161213
  Transmission Date: 20170207
  Serious: Yes (Hospitalization, Other)
  Sender: FDA-Public Use
  Company Number: PHHY2016GR164893

PATIENT
  Sex: Male

DRUGS (3)
  1. PAZOPANIB [Suspect]
     Active Substance: PAZOPANIB
     Dosage: 400 MG, QD
     Route: 048
  2. PAZOPANIB [Suspect]
     Active Substance: PAZOPANIB
     Indication: RENAL CELL CARCINOMA
     Dosage: 800 MG, QD
     Route: 065
     Dates: start: 201312
  3. PAZOPANIB [Suspect]
     Active Substance: PAZOPANIB
     Dosage: 200 MG, BID (MORNING AND EVENIN DAILY)
     Route: 065

REACTIONS (21)
  - Proctalgia [Not Recovered/Not Resolved]
  - Computerised tomogram abnormal [Unknown]
  - Nasal dryness [Not Recovered/Not Resolved]
  - Proteinuria [Not Recovered/Not Resolved]
  - Skin discolouration [Unknown]
  - Blood pressure systolic [Unknown]
  - Asthenia [Unknown]
  - Decreased appetite [Unknown]
  - Pneumonitis [Unknown]
  - Pericardial effusion [Unknown]
  - Respiratory tract infection [Recovered/Resolved]
  - Hypothyroidism [Not Recovered/Not Resolved]
  - Feeling abnormal [Unknown]
  - Dysphonia [Not Recovered/Not Resolved]
  - Hair colour changes [Not Recovered/Not Resolved]
  - Diarrhoea [Unknown]
  - Rash [Not Recovered/Not Resolved]
  - Parosmia [Not Recovered/Not Resolved]
  - Blood creatinine increased [Not Recovered/Not Resolved]
  - Headache [Not Recovered/Not Resolved]
  - Haematuria [Not Recovered/Not Resolved]
